FAERS Safety Report 5815835-8 (Version None)
Quarter: 2008Q3

REPORT INFORMATION
  Report Type: 
  Country: None (occurrence: None)
  Receive Date: 20080721
  Receipt Date: 20080710
  Transmission Date: 20090109
  Serious: Yes (Other)
  Sender: FDA-Public Use
  Company Number: GB-JNJFOC-20080703410

PATIENT
  Sex: Male

DRUGS (5)
  1. REMICADE [Suspect]
     Indication: PYODERMA GANGRENOSUM
     Route: 042
  2. PREDNISONE TAB [Concomitant]
  3. AMLODIPINE [Concomitant]
  4. ACTINEL [Concomitant]
  5. LANSOPRAZOLE [Concomitant]

REACTIONS (2)
  - HAEMOGLOBIN DECREASED [None]
  - NEUTROPHILIA [None]
